FAERS Safety Report 8354559-2 (Version None)
Quarter: 2012Q2

REPORT INFORMATION
  Report Type: 
  Country: None (occurrence: None)
  Receive Date: 20120511
  Receipt Date: 20120503
  Transmission Date: 20120825
  Serious: Yes (Other)
  Sender: FDA-Public Use
  Company Number: US-VERTEX PHARMACEUTICALS INC.-AE-2012-006365

PATIENT
  Sex: Male
  Weight: 95.34 kg

DRUGS (1)
  1. INCIVEK [Suspect]
     Indication: HEPATITIS C
     Route: 048
     Dates: start: 20111031, end: 20120123

REACTIONS (6)
  - FATIGUE [None]
  - DYSGEUSIA [None]
  - WEIGHT DECREASED [None]
  - DECREASED APPETITE [None]
  - HAND FRACTURE [None]
  - APATHY [None]
